FAERS Safety Report 9807408 (Version 4)
Quarter: 2015Q2

REPORT INFORMATION
  Report Type: Spontaneous
  Country: JP (occurrence: JP)
  Receive Date: 20140110
  Receipt Date: 20150507
  Transmission Date: 20150821
  Serious: Yes (Death, Other)
  Sender: FDA-Public Use
  Company Number: JP-009507513-1401JPN003053

PATIENT
  Age: 58 Year
  Sex: Female
  Weight: 32 kg

DRUGS (7)
  1. CALCICOL [Concomitant]
     Active Substance: CALCIUM GLUCONATE
     Indication: HYPOCALCAEMIA
     Dosage: 10 MG, QD
     Route: 051
     Dates: start: 20130726, end: 20130729
  2. CANCIDAS [Suspect]
     Active Substance: CASPOFUNGIN ACETATE
     Indication: SYSTEMIC CANDIDA
     Dosage: 70 MG, ONCE
     Route: 041
     Dates: start: 20130729, end: 20130729
  3. ASPARA [Concomitant]
     Active Substance: CALCIUM ASPARTATE
     Indication: HYPOKALAEMIA
     Dosage: 10 MMOL, BID
     Route: 051
     Dates: start: 20130710, end: 20130812
  4. MEROPEN [Concomitant]
     Active Substance: MEROPENEM
     Indication: DEVICE RELATED INFECTION
     Dosage: 0.5 G, BID
     Route: 051
     Dates: start: 20130726, end: 20130802
  5. KENKETSU GLOVENIN-I-NICHIYAKU [Concomitant]
     Indication: INFECTION
     Dosage: 5 G, QD
     Route: 051
     Dates: start: 20130729, end: 20130731
  6. LASIX [Concomitant]
     Active Substance: FUROSEMIDE
     Indication: CARDIAC FAILURE
     Dosage: 20 MG, BID
     Route: 051
     Dates: start: 20130729, end: 20130807
  7. CANCIDAS [Suspect]
     Active Substance: CASPOFUNGIN ACETATE
     Indication: SYSTEMIC CANDIDA
     Dosage: 50 MG, QD
     Route: 041
     Dates: start: 20130730, end: 20130802

REACTIONS (4)
  - Multi-organ failure [Fatal]
  - Hepatic function abnormal [Fatal]
  - Malabsorption [Fatal]
  - Hepatic function abnormal [Recovered/Resolved]

NARRATIVE: CASE EVENT DATE: 20130729
